FAERS Safety Report 7914407-9 (Version None)
Quarter: 2011Q4

REPORT INFORMATION
  Report Type: 
  Country: None (occurrence: None)
  Receive Date: 20111115
  Receipt Date: 20111110
  Transmission Date: 20120403
  Serious: Yes (Life-Threatening, Hospitalization, Other)
  Sender: FDA-Public Use
  Company Number: AU-ASTRAZENECA-2011SE68212

PATIENT
  Age: 0 Day
  Sex: Male
  Weight: 2.9 kg

DRUGS (4)
  1. ELEVIT [Concomitant]
     Indication: VITAMIN SUPPLEMENTATION
     Dosage: 1 TABLET DAILY INITIATED PRE-PREGNANCY AND STOPPED AT DELIVERY
     Route: 064
  2. VITAMIN D [Concomitant]
     Indication: VITAMIN SUPPLEMENTATION
     Dosage: 1 TABLET DAILY INITIATED IN BEGINING OF PREGNACY AND STOPPED AT DELIVERY
     Route: 064
  3. MIRTAZAPINE [Concomitant]
     Indication: ANTIDEPRESSANT THERAPY
     Dosage: INITIATED AT PRE-PREGNANCY AND STOPPED AT THIRD TRIMESTER
     Route: 064
  4. SEROQUEL XR [Suspect]
     Indication: PSYCHOTIC DISORDER
     Dosage: 700-1000 MG DAILY INITIATED AT PRE-PREGNANCY AND WAS ONGOING
     Route: 064

REACTIONS (2)
  - DRUG WITHDRAWAL SYNDROME NEONATAL [None]
  - RESPIRATORY DISTRESS [None]
